FAERS Safety Report 24975763 (Version 1)
Quarter: 2025Q1

REPORT INFORMATION
  Report Type: Spontaneous
  Country: US (occurrence: US)
  Receive Date: 20250217
  Receipt Date: 20250217
  Transmission Date: 20250409
  Serious: No
  Sender: BRISTOL-MYERS SQUIBB COMPANY
  Company Number: US-BRISTOL-MYERS SQUIBB COMPANY-2025-016130

PATIENT
  Age: 67 Year
  Sex: Female
  Weight: 74.84 kg

DRUGS (8)
  1. ORENCIA [Suspect]
     Active Substance: ABATACEPT
     Indication: Rheumatoid arthritis
     Dosage: DOSE : 125MG;     FREQ : ONCE A WEEK
     Route: 058
     Dates: start: 20250116
  2. FAMOTIDINE [Concomitant]
     Active Substance: FAMOTIDINE
  3. PREDNISONE [Concomitant]
     Active Substance: PREDNISONE
  4. TRIAMTERENE [Concomitant]
     Active Substance: TRIAMTERENE
  5. HYDROXYCHLOROQUINE [Concomitant]
     Active Substance: HYDROXYCHLOROQUINE
  6. FOLIC ACID [Concomitant]
     Active Substance: FOLIC ACID
  7. VITAMIN D3 [Concomitant]
     Active Substance: CHOLECALCIFEROL
  8. ALEVE [Concomitant]
     Active Substance: NAPROXEN SODIUM

REACTIONS (3)
  - Device operational issue [Unknown]
  - Device delivery system issue [Unknown]
  - Product dose omission issue [Unknown]

NARRATIVE: CASE EVENT DATE: 20250130
